FAERS Safety Report 8397092-4 (Version None)
Quarter: 2012Q2

REPORT INFORMATION
  Report Type: 
  Country: None (occurrence: None)
  Receive Date: 20120530
  Receipt Date: 20120515
  Transmission Date: 20120825
  Serious: Yes (Other)
  Sender: FDA-Public Use
  Company Number: CHPA2012US011090

PATIENT
  Age: 72 Year
  Sex: Male

DRUGS (2)
  1. DRUG THERAPY NOS [Concomitant]
  2. EXCEDRIN EXTRA STRENGTH TABLETS [Suspect]
     Indication: HEADACHE
     Dosage: 2 DF, BID
     Route: 048
     Dates: start: 19600101

REACTIONS (3)
  - OFF LABEL USE [None]
  - ARTHRITIS [None]
  - PANIC REACTION [None]
